FAERS Safety Report 5695341-4 (Version None)
Quarter: 2008Q2

REPORT INFORMATION
  Report Type: 
  Country: None (occurrence: None)
  Receive Date: 20080404
  Receipt Date: 20080328
  Transmission Date: 20081010
  Serious: Yes (Other)
  Sender: FDA-Public Use
  Company Number: JP-MERCK-0801USA04618

PATIENT
  Age: 46 Year
  Sex: Male

DRUGS (6)
  1. VASOTEC [Concomitant]
     Route: 048
     Dates: start: 20080108, end: 20080128
  2. PLAVIX [Concomitant]
     Route: 048
     Dates: start: 20080111
  3. PEPCID RPD [Suspect]
     Route: 048
     Dates: start: 20080108, end: 20080118
  4. ASPIRIN [Concomitant]
     Route: 048
     Dates: start: 20080108
  5. PANALDINE [Concomitant]
     Route: 048
     Dates: start: 20080108, end: 20080110
  6. MARZULENE-S [Concomitant]
     Route: 048
     Dates: start: 20080108

REACTIONS (1)
  - ATRIOVENTRICULAR BLOCK COMPLETE [None]
